FAERS Safety Report 23369176 (Version 1)
Quarter: 2024Q1

REPORT INFORMATION
  Report Type: Spontaneous
  Country: US (occurrence: US)
  Receive Date: 20240105
  Receipt Date: 20240105
  Transmission Date: 20240410
  Serious: No
  Sender: FDA-Public Use
  Company Number: US-AstraZeneca-CH-00537274A

PATIENT
  Age: 37 Year
  Sex: Female

DRUGS (1)
  1. ULTOMIRIS [Suspect]
     Active Substance: RAVULIZUMAB-CWVZ
     Indication: Myasthenia gravis
     Dosage: 2700 MILLIGRAM, Q2W
     Route: 041
     Dates: start: 20231229

REACTIONS (4)
  - Joint stiffness [Recovered/Resolved]
  - Musculoskeletal stiffness [Recovered/Resolved]
  - Pharyngeal swelling [Recovered/Resolved]
  - Headache [Recovered/Resolved]

NARRATIVE: CASE EVENT DATE: 20231229
